FAERS Safety Report 13940146 (Version 5)
Quarter: 2018Q4

REPORT INFORMATION
  Report Type: Spontaneous
  Country: IT (occurrence: IT)
  Receive Date: 20170906
  Receipt Date: 20181009
  Transmission Date: 20190204
  Serious: Yes (Hospitalization, Other)
  Sender: FDA-Public Use
  Company Number: IT-SUN PHARMACEUTICAL INDUSTRIES LTD-2017RR-149069

PATIENT
  Age: 75 Year
  Sex: Female

DRUGS (3)
  1. XATRAL [Suspect]
     Active Substance: ALFUZOSIN
     Indication: INCONTINENCE
     Route: 048
  2. LORAZEPAM. [Suspect]
     Active Substance: LORAZEPAM
     Indication: PRODUCT USED FOR UNKNOWN INDICATION
     Route: 048
  3. CLOZAPINE. [Suspect]
     Active Substance: CLOZAPINE
     Indication: PRODUCT USED FOR UNKNOWN INDICATION
     Route: 048

REACTIONS (5)
  - Unresponsive to stimuli [Recovering/Resolving]
  - Toxicity to various agents [Recovering/Resolving]
  - Drug use disorder [Recovering/Resolving]
  - Miosis [Recovering/Resolving]
  - Sopor [Recovering/Resolving]

NARRATIVE: CASE EVENT DATE: 20170728
